FAERS Safety Report 4481230-X (Version None)
Quarter: 2004Q4

REPORT INFORMATION
  Report Type: 
  Country: None (occurrence: None)
  Receive Date: 20040923
  Receipt Date: 20040510
  Transmission Date: 20050328
  Serious: No
  Sender: FDA-Public Use
  Company Number: USA020616580

PATIENT
  Age: 72 Year
  Sex: Female
  Weight: 55 kg

DRUGS (9)
  1. EVISTA [Suspect]
     Indication: OSTEOPOROSIS
     Dosage: 60 MG/L IN THE MORNING
     Dates: start: 20020501
  2. FORTEO [Suspect]
     Indication: OSTEOPOROSIS
     Dates: start: 20040201
  3. PRILOSEC [Concomitant]
  4. CALTRATE + D [Concomitant]
  5. PREMARIN [Concomitant]
  6. LIPITOR [Concomitant]
  7. PHENERGAN [Concomitant]
  8. ANTIVERT [Concomitant]
  9. MAXZIDE [Concomitant]

REACTIONS (5)
  - BALANCE DISORDER [None]
  - BENIGN BREAST NEOPLASM [None]
  - MIGRAINE [None]
  - VISUAL ACUITY REDUCED [None]
  - VOMITING [None]
